FAERS Safety Report 7161065-X (Version None)
Quarter: 2010Q4

REPORT INFORMATION
  Report Type: 
  Country: None (occurrence: None)
  Receive Date: 20101214
  Receipt Date: 20101130
  Transmission Date: 20110411
  Serious: Yes (Other)
  Sender: FDA-Public Use
  Company Number: DE-AMGEN-DEUCT2010008555

PATIENT

DRUGS (3)
  1. ETANERCEPT [Suspect]
     Indication: ANKYLOSING SPONDYLITIS
     Dosage: 50 MG, QWK
     Dates: start: 20091202, end: 20100101
  2. FERRO ^SANOL^ [Concomitant]
     Dosage: UNK
  3. PANTOZOL [Concomitant]
     Dosage: UNK

REACTIONS (2)
  - PNEUMONITIS [None]
  - RESPIRATORY TRACT INFECTION [None]
